FAERS Safety Report 17665508 (Version 1)
Quarter: 2020Q2

REPORT INFORMATION
  Report Type: Spontaneous
  Country: US (occurrence: US)
  Receive Date: 20200413
  Receipt Date: 20200413
  Transmission Date: 20200713
  Serious: Yes (Hospitalization)
  Sender: FDA-Public Use
  Company Number: None

PATIENT
  Age: 72 Year
  Sex: Male
  Weight: 133 kg

DRUGS (1)
  1. APIXABAN (APIXABAN 5MG TAB) [Suspect]
     Active Substance: APIXABAN
     Route: 048
     Dates: start: 20170303

REACTIONS (4)
  - Cellulitis [None]
  - Gastrointestinal haemorrhage [None]
  - Acute kidney injury [None]
  - Gastrointestinal ulcer [None]

NARRATIVE: CASE EVENT DATE: 20191212
